FAERS Safety Report 25689808 (Version 1)
Quarter: 2025Q3

REPORT INFORMATION
  Report Type: Spontaneous
  Country: EU (occurrence: EU)
  Receive Date: 20250818
  Receipt Date: 20250818
  Transmission Date: 20251021
  Serious: Yes (Other)
  Sender: BRISTOL-MYERS SQUIBB COMPANY
  Company Number: EU-BRISTOL-MYERS SQUIBB COMPANY-2025-042061

PATIENT
  Age: 70 Year
  Sex: Female
  Weight: 44 kg

DRUGS (2)
  1. SOTYKTU [Suspect]
     Active Substance: DEUCRAVACITINIB
     Indication: Psoriasis
     Route: 048
     Dates: start: 202503
  2. SOTYKTU [Suspect]
     Active Substance: DEUCRAVACITINIB
     Dosage: ONCE DAILY
     Route: 048
     Dates: start: 20250225, end: 20250228

REACTIONS (5)
  - Vertigo [Unknown]
  - Vein rupture [Unknown]
  - Migraine [Unknown]
  - Dizziness [Unknown]
  - Epistaxis [Unknown]

NARRATIVE: CASE EVENT DATE: 20250301
